FAERS Safety Report 14224045 (Version 1)
Quarter: 2017Q4

REPORT INFORMATION
  Report Type: Spontaneous
  Country: US (occurrence: US)
  Receive Date: 20171125
  Receipt Date: 20171125
  Transmission Date: 20180321
  Serious: No
  Sender: FDA-Public Use
  Company Number: None

PATIENT
  Age: 29 Year
  Sex: Male
  Weight: 90 kg

DRUGS (1)
  1. ALLERGY RELIEF-D [Suspect]
     Active Substance: LORATADINE\PSEUDOEPHEDRINE SULFATE
     Indication: PULMONARY CONGESTION
     Dosage: ?          QUANTITY:1 TABLET(S);?
     Route: 048
     Dates: start: 20171121, end: 20171125

REACTIONS (3)
  - Flushing [None]
  - Headache [None]
  - Abdominal discomfort [None]

NARRATIVE: CASE EVENT DATE: 20171125
